FAERS Safety Report 6937004-0 (Version None)
Quarter: 2010Q3

REPORT INFORMATION
  Report Type: 
  Country: None (occurrence: None)
  Receive Date: 20100823
  Receipt Date: 20100809
  Transmission Date: 20110219
  Serious: Yes (Other)
  Sender: FDA-Public Use
  Company Number: PHHY2010BR53172

PATIENT
  Sex: Female
  Weight: 110 kg

DRUGS (8)
  1. DIOVAN [Suspect]
     Indication: HYPERTENSION
     Dosage: 80 MG, BID
     Route: 048
     Dates: end: 20100501
  2. PAROXETINE HCL [Concomitant]
     Indication: DEPRESSION
     Dosage: 20 MG (1 TABLET AT NIGHT)
     Route: 048
     Dates: start: 20040101
  3. ENALAPRIL MALEATE [Concomitant]
     Indication: HYPERTENSION
     Dosage: 20 MG(1 TABLET EVERY 12 HOURS)
     Route: 048
  4. HYDROCHLOROTHIAZIDE [Concomitant]
     Indication: HYPERTENSION
     Dosage: 25 MG(1 TABLET IN THE MORNING)
     Route: 048
  5. ATENOLOL [Concomitant]
     Indication: ARRHYTHMIA
     Dosage: HALF TABLET PER DAY
     Route: 048
     Dates: start: 20091201
  6. AMLODIPINE [Concomitant]
     Indication: HYPERTENSION
     Dosage: 5 MG(1 TABLET PER DAY)
     Route: 048
     Dates: start: 20100201
  7. AMLODIPINE [Concomitant]
     Dosage: 5 MG(HALF TABLET PER DAY)
     Route: 048
  8. SIMVASTATIN [Concomitant]
     Indication: BLOOD CHOLESTEROL
     Dosage: 1 TABLET AT NIGHT
     Route: 048
     Dates: start: 20100201

REACTIONS (2)
  - CHOLELITHIASIS [None]
  - HYPERTENSION [None]
